FAERS Safety Report 24119570 (Version 1)
Quarter: 2024Q3

REPORT INFORMATION
  Report Type: Spontaneous
  Country: US (occurrence: US)
  Receive Date: 20240722
  Receipt Date: 20240722
  Transmission Date: 20241017
  Serious: No
  Sender: ELI LILLY AND CO
  Company Number: US-ELI_LILLY_AND_COMPANY-US202407012376

PATIENT
  Sex: Female

DRUGS (1)
  1. TIRZEPATIDE [Suspect]
     Active Substance: TIRZEPATIDE
     Indication: Weight control
     Dosage: 0.25 ML, UNKNOWN
     Route: 065
     Dates: start: 202406

REACTIONS (4)
  - Depression [Not Recovered/Not Resolved]
  - Brain fog [Recovering/Resolving]
  - Abnormal behaviour [Recovered/Resolved]
  - Product tampering [Unknown]

NARRATIVE: CASE EVENT DATE: 20240601
